FAERS Safety Report 13076287 (Version 1)
Quarter: 2016Q4

REPORT INFORMATION
  Report Type: Spontaneous
  Country: US (occurrence: US)
  Receive Date: 20161230
  Receipt Date: 20161230
  Transmission Date: 20170207
  Serious: Yes (Hospitalization)
  Sender: FDA-Public Use
  Company Number: None

PATIENT
  Age: 78 Year
  Sex: Male
  Weight: 78 kg

DRUGS (2)
  1. APIXABAN [Suspect]
     Active Substance: APIXABAN
     Indication: HAEMORRHAGIC ANAEMIA
     Dates: start: 20151125, end: 20160620
  2. APIXABAN [Suspect]
     Active Substance: APIXABAN
     Indication: GASTROINTESTINAL HAEMORRHAGE
     Dates: start: 20151125, end: 20160620

REACTIONS (2)
  - Gastric ulcer [None]
  - Gastrointestinal haemorrhage [None]

NARRATIVE: CASE EVENT DATE: 20160617
